FAERS Safety Report 20817890 (Version 1)
Quarter: 2022Q2

REPORT INFORMATION
  Report Type: Spontaneous
  Country: ES (occurrence: ES)
  Receive Date: 20220512
  Receipt Date: 20220512
  Transmission Date: 20220721
  Serious: Yes (Other)
  Sender: FDA-Public Use
  Company Number: None

PATIENT
  Age: 46 Year
  Sex: Female

DRUGS (3)
  1. VANCOMYCIN [Suspect]
     Active Substance: VANCOMYCIN
     Indication: Product used for unknown indication
     Dates: start: 20210729
  2. AZTREONAM [Suspect]
     Active Substance: AZTREONAM
     Indication: Product used for unknown indication
     Dates: start: 20210731, end: 20210801
  3. LINEZOLID [Concomitant]
     Active Substance: LINEZOLID

REACTIONS (1)
  - Toxic skin eruption [Unknown]

NARRATIVE: CASE EVENT DATE: 20210731
